FAERS Safety Report 4311913-3 (Version None)
Quarter: 2004Q1

REPORT INFORMATION
  Report Type: 
  Country: None (occurrence: None)
  Receive Date: 20040305
  Receipt Date: 20031211
  Transmission Date: 20041129
  Serious: Yes (Other)
  Sender: FDA-Public Use
  Company Number: PHNU2003DE04375

PATIENT
  Age: 81 Year
  Sex: Female

DRUGS (2)
  1. PROVAS [Suspect]
     Indication: HYPERTENSION
     Route: 048
     Dates: start: 20030901, end: 20031210
  2. SOTALOL HCL [Suspect]
     Indication: ARRHYTHMIA

REACTIONS (5)
  - BONE MARROW DEPRESSION [None]
  - CONDITION AGGRAVATED [None]
  - HAEMOGLOBIN DECREASED [None]
  - PLATELET COUNT DECREASED [None]
  - WHITE BLOOD CELL COUNT DECREASED [None]
